FAERS Safety Report 4724493-5 (Version None)
Quarter: 2005Q3

REPORT INFORMATION
  Report Type: 
  Country: None (occurrence: None)
  Receive Date: 20050721
  Receipt Date: 20050714
  Transmission Date: 20060218
  Serious: Yes (Other)
  Sender: FDA-Public Use
  Company Number: 2005102471

PATIENT
  Sex: Male

DRUGS (3)
  1. LIPITOR [Suspect]
     Indication: BLOOD PRESSURE INCREASED
     Dosage: UNK (40 MG); ORAL
     Route: 048
     Dates: end: 20050101
  2. ASPIRIN [Concomitant]
  3. ATENOLOL [Concomitant]

REACTIONS (12)
  - ARTHRITIS [None]
  - ARTHROPATHY [None]
  - CHEST PAIN [None]
  - CONTUSION [None]
  - EPICONDYLITIS [None]
  - JOINT SWELLING [None]
  - MUSCLE ATROPHY [None]
  - MUSCULAR WEAKNESS [None]
  - NECK PAIN [None]
  - OEDEMA PERIPHERAL [None]
  - PAIN IN EXTREMITY [None]
  - REFUSAL OF TREATMENT BY PATIENT [None]
